FAERS Safety Report 11742137 (Version 2)
Quarter: 2015Q4

REPORT INFORMATION
  Report Type: Spontaneous
  Country: US (occurrence: US)
  Receive Date: 20151116
  Receipt Date: 20151125
  Transmission Date: 20160304
  Serious: Yes (Hospitalization, Other)
  Sender: FDA-Public Use
  Company Number: US-ASTELLAS-2015US042148

PATIENT
  Sex: Male

DRUGS (1)
  1. XTANDI [Suspect]
     Active Substance: ENZALUTAMIDE
     Indication: PROSTATE CANCER
     Dosage: 04 DF, ONCE DAILY (04 CAPSULES PER DAY)
     Route: 048

REACTIONS (6)
  - Bladder disorder [Unknown]
  - Malignant neoplasm progression [Unknown]
  - Dysuria [Unknown]
  - Dysphagia [Unknown]
  - Product size issue [Unknown]
  - Hospitalisation [Unknown]
